FAERS Safety Report 5702400-6 (Version None)
Quarter: 2008Q2

REPORT INFORMATION
  Report Type: 
  Country: None (occurrence: None)
  Receive Date: 20080411
  Receipt Date: 20080403
  Transmission Date: 20081010
  Serious: Yes (Death, Life-Threatening, Hospitalization)
  Sender: FDA-Public Use
  Company Number: SE-ASTRAZENECA-2008SE01552

PATIENT
  Age: 87 Year
  Sex: Female

DRUGS (2)
  1. NAROPIN [Suspect]
     Indication: LOCAL ANAESTHESIA
     Dates: start: 20080309, end: 20080309
  2. OXYCONTIN [Concomitant]
     Dates: start: 20080309

REACTIONS (2)
  - CARDIAC ARREST [None]
  - CONVULSION [None]
